FAERS Safety Report 5948443-9 (Version None)
Quarter: 2008Q4

REPORT INFORMATION
  Report Type: 
  Country: None (occurrence: None)
  Receive Date: 20081110
  Receipt Date: 20081110
  Transmission Date: 20090506
  Serious: Yes (Hospitalization)
  Sender: FDA-Public Use
  Company Number: None

PATIENT
  Sex: Female
  Weight: 60 kg

DRUGS (1)
  1. PHENERGAN [Suspect]
     Indication: GASTROENTERITIS
     Dosage: 25MG ONCE IM
     Route: 030
     Dates: start: 20081102, end: 20081102

REACTIONS (4)
  - AMNESIA [None]
  - DELIRIUM [None]
  - MYOCLONUS [None]
  - NEUROLEPTIC MALIGNANT SYNDROME [None]
